FAERS Safety Report 14265724 (Version 6)
Quarter: 2018Q2

REPORT INFORMATION
  Report Type: Spontaneous
  Country: US (occurrence: US)
  Receive Date: 20171208
  Receipt Date: 20180413
  Transmission Date: 20180711
  Serious: No
  Sender: FDA-Public Use
  Company Number: PHEH2017US039531

PATIENT
  Age: 62 Year
  Sex: Female

DRUGS (1)
  1. TAFINLAR [Suspect]
     Active Substance: DABRAFENIB MESYLATE
     Indication: ERDHEIM-CHESTER DISEASE
     Dosage: 2 DF (150 MG), Q12H
     Route: 048
     Dates: start: 20171103

REACTIONS (12)
  - Gait disturbance [Unknown]
  - Dizziness [Unknown]
  - Nasopharyngitis [Unknown]
  - Ill-defined disorder [Unknown]
  - Product use in unapproved indication [Unknown]
  - Hypoaesthesia [Unknown]
  - Joint swelling [Unknown]
  - Headache [Unknown]
  - Vision blurred [Recovering/Resolving]
  - Rash [Unknown]
  - Fatigue [Unknown]
  - Tension headache [Recovered/Resolved]

NARRATIVE: CASE EVENT DATE: 20171204
